FAERS Safety Report 22707504 (Version 2)
Quarter: 2024Q4

REPORT INFORMATION
  Report Type: Spontaneous
  Country: US (occurrence: US)
  Receive Date: 20230714
  Receipt Date: 20241007
  Transmission Date: 20250114
  Serious: No
  Sender: SANOFI AVENTIS
  Company Number: US-SA-SAC20230712000329

PATIENT
  Age: 57 Year
  Sex: Female

DRUGS (1)
  1. DUPIXENT [Suspect]
     Active Substance: DUPILUMAB
     Indication: Asthma
     Dosage: 300 MG, QOW
     Route: 058
     Dates: end: 2024

REACTIONS (8)
  - Injection site irritation [Unknown]
  - Foreign body sensation in eyes [Unknown]
  - Influenza like illness [Recovering/Resolving]
  - Skin exfoliation [Unknown]
  - Injection site pain [Unknown]
  - Eye irritation [Unknown]
  - Asthma [Recovering/Resolving]
  - Product dose omission in error [Unknown]

NARRATIVE: CASE EVENT DATE: 20240731
